FAERS Safety Report 10559940 (Version 1)
Quarter: 2014Q4

REPORT INFORMATION
  Report Type: Spontaneous
  Country: CA (occurrence: None)
  Receive Date: 20141030
  Receipt Date: 20141030
  Transmission Date: 20150529
  Serious: Yes (Hospitalization)
  Sender: FDA-Public Use
  Company Number: CA-017485

PATIENT
  Age: 92 Year
  Sex: Male

DRUGS (5)
  1. HYDRAZAINE [Concomitant]
  2. CLONAZEPAM. [Concomitant]
     Active Substance: CLONAZEPAM
  3. OLMETEC PLUS [Concomitant]
     Active Substance: HYDROCHLOROTHIAZIDE\OLMESARTAN MEDOXOMIL
  4. FIRMAGON [Suspect]
     Active Substance: DEGARELIX ACETATE
     Indication: PROSTATE CANCER
     Route: 058
     Dates: start: 20140121
  5. BICALUTAMIDE TEVA [Concomitant]
     Active Substance: BICALUTAMIDE

REACTIONS (1)
  - Haematuria [None]

NARRATIVE: CASE EVENT DATE: 20141021
